FAERS Safety Report 16974198 (Version 1)
Quarter: 2019Q4

REPORT INFORMATION
  Report Type: Spontaneous
  Country: FR (occurrence: FR)
  Receive Date: 20191030
  Receipt Date: 20191030
  Transmission Date: 20200122
  Serious: Yes (Other)
  Sender: FDA-Public Use
  Company Number: FR-ADVANZ PHARMA-201910001379

PATIENT

DRUGS (3)
  1. HYDROXYCHLOROQUINE [Suspect]
     Active Substance: HYDROXYCHLOROQUINE
     Dosage: 1 DOSAGE FORM, QD ( STARTED 3-OCT IN UNKNOWN YEAR
     Route: 065
  2. ZOFENIL [Concomitant]
     Active Substance: ZOFENOPRIL
  3. HYDROXYCHLOROQUINE [Suspect]
     Active Substance: HYDROXYCHLOROQUINE
     Indication: SJOGREN^S SYNDROME
     Dosage: 1 DOSAGE FORM ( FILM-COATED TABLET), QD (STARTED IN JANUARY IN UNKNOWN YEAR)
     Route: 065

REACTIONS (5)
  - Abdominal pain upper [Unknown]
  - Off label use [Unknown]
  - Migraine [Not Recovered/Not Resolved]
  - Dermatitis bullous [Unknown]
  - Nausea [Not Recovered/Not Resolved]
